FAERS Safety Report 8775411 (Version 5)
Quarter: 2013Q4

REPORT INFORMATION
  Report Type: Spontaneous
  Country: US (occurrence: US)
  Receive Date: 20120910
  Receipt Date: 20131113
  Transmission Date: 20140711
  Serious: Yes (Other)
  Sender: FDA-Public Use
  Company Number: US-ROCHE-1024915

PATIENT
  Age: 17 Year
  Sex: Female

DRUGS (1)
  1. ACCUTANE [Suspect]
     Indication: ACNE
     Route: 048
     Dates: start: 2008

REACTIONS (4)
  - Inflammatory bowel disease [Unknown]
  - Crohn^s disease [Unknown]
  - Anal fistula [Unknown]
  - Rectal abscess [Unknown]
